FAERS Safety Report 5862123-X (Version None)
Quarter: 2008Q3

REPORT INFORMATION
  Report Type: 
  Country: None (occurrence: None)
  Receive Date: 20080828
  Receipt Date: 20070730
  Transmission Date: 20090109
  Serious: No
  Sender: FDA-Public Use
  Company Number: A0667964A

PATIENT
  Sex: Female

DRUGS (1)
  1. ACYCLOVIR [Suspect]
     Route: 065

REACTIONS (2)
  - DIZZINESS [None]
  - NAUSEA [None]
